FAERS Safety Report 18160753 (Version 5)
Quarter: 2025Q2

REPORT INFORMATION
  Report Type: Spontaneous
  Country: US (occurrence: US)
  Receive Date: 20200817
  Receipt Date: 20250624
  Transmission Date: 20250717
  Serious: Yes (Other)
  Sender: GILEAD
  Company Number: US-GILEAD-2020-0489852

PATIENT
  Sex: Male
  Weight: 97.506 kg

DRUGS (93)
  1. TRUVADA [Suspect]
     Active Substance: EMTRICITABINE\TENOFOVIR DISOPROXIL FUMARATE
     Indication: HIV infection
     Route: 048
     Dates: start: 20120828, end: 20120919
  2. TRUVADA [Suspect]
     Active Substance: EMTRICITABINE\TENOFOVIR DISOPROXIL FUMARATE
     Route: 048
     Dates: start: 2013, end: 2014
  3. ATRIPLA [Suspect]
     Active Substance: EFAVIRENZ\EMTRICITABINE\TENOFOVIR DISOPROXIL FUMARATE
     Indication: HIV infection
     Route: 048
     Dates: start: 20121023
  4. STRIBILD [Suspect]
     Active Substance: COBICISTAT\ELVITEGRAVIR\EMTRICITABINE\TENOFOVIR DISOPROXIL FUMARATE
     Indication: Product used for unknown indication
     Route: 048
     Dates: start: 2012
  5. VIREAD [Suspect]
     Active Substance: TENOFOVIR DISOPROXIL FUMARATE
     Indication: HIV infection
     Route: 048
     Dates: start: 2013, end: 2014
  6. COMPLERA [Suspect]
     Active Substance: EMTRICITABINE\RILPIVIRINE HYDROCHLORIDE\TENOFOVIR DISOPROXIL FUMARATE
     Indication: HIV infection
     Route: 048
     Dates: start: 2013, end: 2014
  7. EPIVIR [Concomitant]
     Active Substance: LAMIVUDINE
  8. EPZICOM [Concomitant]
     Active Substance: ABACAVIR SULFATE\LAMIVUDINE
  9. NORVIR [Concomitant]
     Active Substance: RITONAVIR
  10. PREZISTA [Concomitant]
     Active Substance: DARUNAVIR ETHANOLATE
  11. TRIUMEQ [Concomitant]
     Active Substance: ABACAVIR SULFATE\DOLUTEGRAVIR SODIUM\LAMIVUDINE
  12. ZIAGEN [Concomitant]
     Active Substance: ABACAVIR SULFATE
  13. ACETAMINOPHEN\OXYCODONE HYDROCHLORIDE [Concomitant]
     Active Substance: ACETAMINOPHEN\OXYCODONE HYDROCHLORIDE
  14. ACETAMINOPHEN [Concomitant]
     Active Substance: ACETAMINOPHEN
  15. ACYCLOVIR [Concomitant]
     Active Substance: ACYCLOVIR
  16. ALBUTEROL SULFATE [Concomitant]
     Active Substance: ALBUTEROL SULFATE
  17. ALPRAZOLAM [Concomitant]
     Active Substance: ALPRAZOLAM
  18. AMITRIPTYLINE [Concomitant]
     Active Substance: AMITRIPTYLINE
  19. AMPHOTERICIN B [Concomitant]
     Active Substance: AMPHOTERICIN B
  20. AMPICILLIN [Concomitant]
     Active Substance: AMPICILLIN
  21. ASPIRIN [Concomitant]
     Active Substance: ASPIRIN
  22. ATORVASTATIN [Concomitant]
     Active Substance: ATORVASTATIN
  23. ATOVAQUONE [Concomitant]
     Active Substance: ATOVAQUONE
  24. AZITHROMYCIN [Concomitant]
     Active Substance: AZITHROMYCIN
  25. HYDROCODONE [Concomitant]
     Active Substance: HYDROCODONE
  26. CEFAZOLIN [Concomitant]
     Active Substance: CEFAZOLIN
  27. CEFEPIME [Concomitant]
     Active Substance: CEFEPIME HYDROCHLORIDE
  28. CEFTRIAXONE [Concomitant]
     Active Substance: CEFTRIAXONE
  29. CETIRIZINE [Concomitant]
     Active Substance: CETIRIZINE HYDROCHLORIDE
  30. CHLORPROMAZINE [Concomitant]
     Active Substance: CHLORPROMAZINE
  31. DAPSONE [Concomitant]
     Active Substance: DAPSONE
  32. DARUNAVIR [Concomitant]
     Active Substance: DARUNAVIR
  33. DEXAMETHASONE [Concomitant]
     Active Substance: DEXAMETHASONE
  34. EFAVIRENZ [Concomitant]
     Active Substance: EFAVIRENZ
  35. ENOXAPARIN [Concomitant]
     Active Substance: ENOXAPARIN
  36. ERGOCALCIFEROL [Concomitant]
     Active Substance: ERGOCALCIFEROL
  37. ETHAMBUTOL [Concomitant]
     Active Substance: ETHAMBUTOL HYDROCHLORIDE
  38. FERROUS GLUCONATE [Concomitant]
     Active Substance: FERROUS GLUCONATE
  39. FLUCONAZOLE [Concomitant]
     Active Substance: FLUCONAZOLE
  40. FLUCYTOSINE [Concomitant]
     Active Substance: FLUCYTOSINE
  41. FLUDROCORTISONE ACETATE [Concomitant]
     Active Substance: FLUDROCORTISONE ACETATE
  42. FLUNISOLIDE [Concomitant]
     Active Substance: FLUNISOLIDE
  43. FOLIC ACID [Concomitant]
     Active Substance: FOLIC ACID
  44. GABAPENTIN [Concomitant]
     Active Substance: GABAPENTIN
  45. GLUCAGON [Concomitant]
     Active Substance: GLUCAGON
  46. HEPARIN [Concomitant]
     Active Substance: HEPARIN SODIUM
  47. HYDROXYZINE [Concomitant]
     Active Substance: HYDROXYZINE HYDROCHLORIDE
  48. INSULIN NOS [Concomitant]
     Active Substance: INSULIN NOS
  49. ISONIAZID [Concomitant]
     Active Substance: ISONIAZID
  50. LAMIVUDINE [Concomitant]
     Active Substance: LAMIVUDINE
  51. LAMOTRIGINE [Concomitant]
     Active Substance: LAMOTRIGINE
  52. LEVETIRACETAM [Concomitant]
     Active Substance: LEVETIRACETAM
  53. LORATADINE [Concomitant]
     Active Substance: LORATADINE
  54. LORAZEPAM [Concomitant]
     Active Substance: LORAZEPAM
  55. MAGNESIUM SULFATE [Concomitant]
     Active Substance: MAGNESIUM SULFATE
  56. MECLIZINE HYDROCHLORIDE [Concomitant]
     Active Substance: MECLIZINE HYDROCHLORIDE
  57. MEGESTROL ACETATE [Concomitant]
     Active Substance: MEGESTROL ACETATE
  58. METRONIDAZOLE [Concomitant]
     Active Substance: METRONIDAZOLE
  59. MIDAZOLAM [Concomitant]
     Active Substance: MIDAZOLAM
  60. MIRTAZAPINE [Concomitant]
     Active Substance: MIRTAZAPINE
  61. MORPHINE [Concomitant]
     Active Substance: MORPHINE
  62. MOXIFLOXACIN [Concomitant]
     Active Substance: MOXIFLOXACIN
  63. VITAMINS NOS [Concomitant]
     Active Substance: VITAMINS
  64. NITROFURANTOIN MONOHYDRATE MACROCRYSTALS [Concomitant]
     Active Substance: NITROFURANTOIN\NITROFURANTOIN MONOHYDRATE
  65. OLANZAPINE [Concomitant]
     Active Substance: OLANZAPINE
  66. OMEPRAZOLE [Concomitant]
     Active Substance: OMEPRAZOLE
  67. ONDANSETRON [Concomitant]
     Active Substance: ONDANSETRON
  68. PIPERACILLIN SODIUM\TAZOBACTAM SODIUM [Concomitant]
     Active Substance: PIPERACILLIN SODIUM\TAZOBACTAM SODIUM
  69. PRAVASTATIN [Concomitant]
     Active Substance: PRAVASTATIN
  70. PREDNISONE [Concomitant]
     Active Substance: PREDNISONE
  71. PROMETHAZINE [Concomitant]
     Active Substance: PROMETHAZINE HYDROCHLORIDE
  72. HERBALS\PLANTAGO INDICA WHOLE [Concomitant]
     Active Substance: HERBALS\PLANTAGO INDICA WHOLE
  73. PYRAZINAMIDE [Concomitant]
     Active Substance: PYRAZINAMIDE
  74. PYRIDOXINE HYDROCHLORIDE [Concomitant]
     Active Substance: PYRIDOXINE HYDROCHLORIDE
  75. RANITIDINE HYDROCHLORIDE [Concomitant]
     Active Substance: RANITIDINE HYDROCHLORIDE
  76. RIFABUTIN [Concomitant]
     Active Substance: RIFABUTIN
  77. RIFAMPIN [Concomitant]
     Active Substance: RIFAMPIN
  78. RIVAROXABAN [Concomitant]
     Active Substance: RIVAROXABAN
  79. ROSUVASTATIN CALCIUM [Concomitant]
     Active Substance: ROSUVASTATIN CALCIUM
  80. SERTRALINE HYDROCHLORIDE [Concomitant]
     Active Substance: SERTRALINE HYDROCHLORIDE
  81. SILDENAFIL CITRATE [Concomitant]
     Active Substance: SILDENAFIL CITRATE
  82. SIMVASTATIN [Concomitant]
     Active Substance: SIMVASTATIN
  83. SULFAMETHOXAZOLE [Concomitant]
     Active Substance: SULFAMETHOXAZOLE
  84. TESTOSTERONE CYPIONATE [Concomitant]
     Active Substance: TESTOSTERONE CYPIONATE
  85. THIAMINE [Concomitant]
     Active Substance: THIAMINE
  86. TRAMADOL [Concomitant]
     Active Substance: TRAMADOL
  87. TRAZODONE HCL [Concomitant]
     Active Substance: TRAZODONE HYDROCHLORIDE
  88. VANCOMYCIN [Concomitant]
     Active Substance: VANCOMYCIN
  89. VITAMIN B COMPLEX [Concomitant]
     Active Substance: CYANOCOBALAMIN\DEXPANTHENOL\NIACINAMIDE\PYRIDOXINE HYDROCHLORIDE\RIBOFLAVIN 5^-PHOSPHATE SODIUM\THIA
  90. VITAMIN C [Concomitant]
     Active Substance: ASCORBIC ACID
  91. WARFARIN [Concomitant]
     Active Substance: WARFARIN
  92. ZINC [Concomitant]
     Active Substance: ZINC
  93. POTASSIUM PHOSPHATE, MONOBASIC [Concomitant]
     Active Substance: POTASSIUM PHOSPHATE, MONOBASIC

REACTIONS (12)
  - Multiple fractures [Recovered/Resolved]
  - Renal impairment [Not Recovered/Not Resolved]
  - Renal injury [Unknown]
  - Osteoporosis [Not Recovered/Not Resolved]
  - Chronic kidney disease [Not Recovered/Not Resolved]
  - Renal failure [Unknown]
  - Bone density decreased [Recovered/Resolved]
  - Pain [Unknown]
  - Emotional distress [Unknown]
  - Anxiety [Unknown]
  - Anhedonia [Unknown]
  - Skeletal injury [Unknown]

NARRATIVE: CASE EVENT DATE: 20130101
